FAERS Safety Report 8508142 (Version 3)
Quarter: 2012Q4

REPORT INFORMATION
  Report Type: 
  Country: US (occurrence: US)
  Receive Date: 20120412
  Receipt Date: 20121022
  Transmission Date: 20130627
  Serious: Yes (Hospitalization)
  Sender: FDA-Public Use
  Company Number: US-ASTRAZENECA-2011SE54602

PATIENT
  Age: 47 Year
  Sex: Female

DRUGS (5)
  1. NEXIUM [Suspect]
     Route: 048
  2. NEXIUM [Interacting]
     Route: 048
  3. NESACAINE [Suspect]
     Route: 065
  4. OTHER MEDICATIONS [Interacting]
  5. PROZAC [Concomitant]

REACTIONS (11)
  - Drug interaction [Unknown]
  - Haemoglobin decreased [Unknown]
  - Dysphagia [Unknown]
  - Tongue ulceration [Unknown]
  - Hot flush [Unknown]
  - Spondylitis [Unknown]
  - Intervertebral disc compression [Unknown]
  - Intervertebral disc degeneration [Unknown]
  - Hormone level abnormal [Unknown]
  - Regurgitation [Unknown]
  - Drug dose omission [Unknown]
